FAERS Safety Report 9954292 (Version 1)
Quarter: 2014Q1

REPORT INFORMATION
  Report Type: Report from Study
  Country: US (occurrence: US)
  Receive Date: 20140304
  Receipt Date: 20140304
  Transmission Date: 20141002
  Serious: No
  Sender: FDA-Public Use
  Company Number: US-ABBVIE-13P-163-1074732-00

PATIENT
  Age: 27 Year
  Sex: Male

DRUGS (10)
  1. HUMIRA [Suspect]
     Indication: PSORIATIC ARTHROPATHY
     Dates: start: 20130329
  2. RAMIPRIL [Concomitant]
     Indication: HYPERTENSION
  3. NORCO [Concomitant]
     Indication: PAIN
     Dosage: 10/325MG, 4 TIMES DAILY, AS NEEDED
  4. WELLBUTRIN SR [Concomitant]
     Indication: DEPRESSION
     Dosage: EVERY MORNING
  5. LINZESS [Concomitant]
     Indication: CONSTIPATION
     Dosage: 30 MINUTES BEFORE BREAKFAST
  6. VITAMIN E [Concomitant]
     Indication: PRODUCT USED FOR UNKNOWN INDICATION
  7. OMEGA 3 [Concomitant]
     Indication: VITAMIN SUPPLEMENTATION
  8. ADVAIR [Concomitant]
     Indication: ASTHMA
     Dosage: 250/50, TWICE DAILY
  9. ASTEPRO [Concomitant]
     Indication: HYPERSENSITIVITY
     Dosage: TWICE DAILY
  10. FLONASE [Concomitant]
     Indication: HYPERSENSITIVITY

REACTIONS (1)
  - Injection site pain [Not Recovered/Not Resolved]
